FAERS Safety Report 8409210-X (Version None)
Quarter: 2012Q2

REPORT INFORMATION
  Report Type: 
  Country: None (occurrence: None)
  Receive Date: 20120604
  Receipt Date: 20120604
  Transmission Date: 20120825
  Serious: Yes (Disabling)
  Sender: FDA-Public Use
  Company Number: BR-BAYER-2011-108890

PATIENT
  Sex: Female

DRUGS (5)
  1. FLUOXETINE [Concomitant]
     Indication: ANXIETY
     Dosage: 20 MG, QD
     Route: 048
     Dates: start: 20080101
  2. VENLAFAXINE [Concomitant]
     Indication: ANXIETY
     Dosage: 75 MG, QD
     Route: 048
     Dates: start: 20080101
  3. INTERFERON BETA-1B [Suspect]
     Indication: MULTIPLE SCLEROSIS
     Dosage: 8 MIU, QOD
     Route: 058
     Dates: start: 20100301
  4. LEVOTHYROXINE SODIUM [Concomitant]
     Indication: HYPOTHYROIDISM
     Dosage: 75 MG, QD
     Route: 048
     Dates: start: 20090101
  5. DIAZEPAN [Concomitant]
     Indication: INSOMNIA
     Dosage: 1 DF, PRN
     Route: 048
     Dates: start: 20050101

REACTIONS (3)
  - GAIT DISTURBANCE [None]
  - URINARY INCONTINENCE [None]
  - VISUAL IMPAIRMENT [None]
